FAERS Safety Report 4378962-0 (Version None)
Quarter: 2004Q2

REPORT INFORMATION
  Report Type: 
  Country: None (occurrence: None)
  Receive Date: 20040601
  Receipt Date: 20040316
  Transmission Date: 20050107
  Serious: No
  Sender: FDA-Public Use
  Company Number: WAES 0403USA01464

PATIENT
  Age: 79 Year
  Sex: Female
  Weight: 95.709 kg

DRUGS (4)
  1. ZETIA [Suspect]
     Indication: HYPERCHOLESTEROLAEMIA
     Dosage: SEE IMAGE
     Route: 048
     Dates: start: 20030506, end: 20031009
  2. ZETIA [Suspect]
     Indication: HYPERCHOLESTEROLAEMIA
     Dosage: SEE IMAGE
     Route: 048
     Dates: start: 20031023, end: 20040217
  3. NORVASC [Concomitant]
  4. SYNTHROID [Concomitant]

REACTIONS (2)
  - ALANINE AMINOTRANSFERASE INCREASED [None]
  - ASPARTATE AMINOTRANSFERASE INCREASED [None]
